FAERS Safety Report 22163245 (Version 1)
Quarter: 2023Q2

REPORT INFORMATION
  Report Type: Spontaneous
  Country: GB (occurrence: GB)
  Receive Date: 20230401
  Receipt Date: 20230401
  Transmission Date: 20230722
  Serious: Yes (Other)
  Sender: FDA-Public Use
  Company Number: GB-MHRA-TPP27347572C7332206YC1654507340854

PATIENT
  Age: 49 Year
  Sex: Female
  Weight: 64 kg

DRUGS (12)
  1. TRAMADOL [Suspect]
     Active Substance: TRAMADOL
     Indication: Ill-defined disorder
     Dosage: UNK
     Route: 065
     Dates: start: 20220606
  2. BUPRENORPHINE [Concomitant]
     Active Substance: BUPRENORPHINE
     Indication: Ill-defined disorder
     Dosage: 1 DOSAGE FORM, EVERY WEEK  (APPLY ONE WEEKLY)
     Route: 065
     Dates: start: 20220329
  3. DULOXETINE [Concomitant]
     Active Substance: DULOXETINE
     Indication: Ill-defined disorder
     Dosage: 1 DOSAGE FORM, ONCE A DAY  (TAKE ONE DAILY)
     Route: 065
     Dates: start: 20211025
  4. HYDROXYZINE [Concomitant]
     Active Substance: HYDROXYZINE HYDROCHLORIDE
     Indication: Ill-defined disorder
     Dosage: AT NIGHT, CAN INCREASE TO TWO AT NIGHT.
     Route: 065
     Dates: start: 20210129
  5. IBUPROFEN [Concomitant]
     Active Substance: IBUPROFEN
     Indication: Ill-defined disorder
     Dosage: 1 DOSAGE FORM, 3 TIMES A DAY AFTER FOOD
     Route: 065
     Dates: start: 20220506
  6. NAPROXEN [Concomitant]
     Active Substance: NAPROXEN
     Indication: Ill-defined disorder
     Dosage: 1 DOSAGE FORM, TWO TIMES A DAY (WHEN REQUIRED FOR P...)
     Route: 065
     Dates: start: 20220526
  7. NAPROXEN [Concomitant]
     Active Substance: NAPROXEN
     Indication: Pain
  8. NEFOPAM [Concomitant]
     Active Substance: NEFOPAM
     Indication: Ill-defined disorder
     Dosage: 2 DOSAGE FORM, 3 TIMES A DAY (OCCASIONAL USE ONLY ADVISED)
     Route: 065
     Dates: start: 20220526
  9. OMEPRAZOLE [Concomitant]
     Active Substance: OMEPRAZOLE
     Indication: Ill-defined disorder
     Dosage: 1 DOSAGE FORM, ONCE A DAY  (TAKE ONE DAILY)
     Route: 065
     Dates: start: 20220117
  10. ACETAMINOPHEN [Concomitant]
     Active Substance: ACETAMINOPHEN
     Indication: Ill-defined disorder
     Dosage: TAKE ONE OR TWO TABLETS FOUR TIMES A DAY AS REQ...
     Route: 065
     Dates: start: 20211015
  11. PROPRANOLOL [Concomitant]
     Active Substance: PROPRANOLOL HYDROCHLORIDE
     Indication: Ill-defined disorder
     Dosage: 1 DOSAGE FORM, 3 TIMES A DAY PRN
     Route: 065
     Dates: start: 20210129
  12. TRANEXAMIC ACID [Concomitant]
     Active Substance: TRANEXAMIC ACID
     Indication: Ill-defined disorder
     Dosage: FOR UP TO 4 DAYS WHILST ON PERIOD
     Route: 065
     Dates: start: 20210129

REACTIONS (3)
  - Diarrhoea [Recovered/Resolved]
  - Constipation [Recovered/Resolved]
  - Abdominal discomfort [Recovered/Resolved]

NARRATIVE: CASE EVENT DATE: 20220606
